FAERS Safety Report 19084528 (Version 1)
Quarter: 2021Q2

REPORT INFORMATION
  Report Type: Spontaneous
  Country: US (occurrence: US)
  Receive Date: 20210401
  Receipt Date: 20210401
  Transmission Date: 20210717
  Serious: No
  Sender: FDA-Public Use
  Company Number: US-IBSA PHARMA-2020-IBS-00734

PATIENT
  Age: 67 Year

DRUGS (10)
  1. ACETAMINOPHEN. [Suspect]
     Active Substance: ACETAMINOPHEN
  2. NAPROXEN. [Suspect]
     Active Substance: NAPROXEN
  3. DICLOFENAC EPOLAMINE [Suspect]
     Active Substance: DICLOFENAC EPOLAMINE
  4. PREGABALIN. [Suspect]
     Active Substance: PREGABALIN
  5. RIVAROXABAN [Suspect]
     Active Substance: RIVAROXABAN
  6. MORPHINE SULFATE. [Suspect]
     Active Substance: MORPHINE SULFATE
  7. OXYCODONE HYDROCHLORIDE. [Suspect]
     Active Substance: OXYCODONE HYDROCHLORIDE
  8. OXYCODONE [Suspect]
     Active Substance: OXYCODONE
  9. DULOXETINE HCL [Suspect]
     Active Substance: DULOXETINE HYDROCHLORIDE
  10. VENLAFAXINE HYDROCHLORIDE. [Suspect]
     Active Substance: VENLAFAXINE HYDROCHLORIDE

REACTIONS (1)
  - Drug hypersensitivity [Unknown]
